FAERS Safety Report 6501815-6 (Version None)
Quarter: 2009Q4

REPORT INFORMATION
  Report Type: 
  Country: None (occurrence: None)
  Receive Date: 20091210
  Receipt Date: 20091202
  Transmission Date: 20100525
  Serious: Yes (Other)
  Sender: FDA-Public Use
  Company Number: A0833117A

PATIENT
  Sex: Male

DRUGS (1)
  1. SODIUM FLUORIDE+ISOPENTAN (FORMULATION UNKNOWN) (SODIUM FLUORIDE+ISOPE [Suspect]
     Indication: DENTAL CLEANING
     Dosage: DENTAL
     Route: 004

REACTIONS (2)
  - ACCIDENTAL EXPOSURE [None]
  - CHOKING [None]
